FAERS Safety Report 6202963-0 (Version None)
Quarter: 2009Q2

REPORT INFORMATION
  Report Type: 
  Country: None (occurrence: None)
  Receive Date: 20090515
  Receipt Date: 20090430
  Transmission Date: 20091009
  Serious: Yes (Other)
  Sender: FDA-Public Use
  Company Number: OMX-2009-00011

PATIENT
  Age: 37 Year
  Sex: Female

DRUGS (1)
  1. QUIXIL (FACTOR I (FIBRINOGEN)) [Suspect]
     Indication: HEPATECTOMY
     Dosage: PULVERISATION

REACTIONS (3)
  - AIR EMBOLISM [None]
  - DEVICE MISUSE [None]
  - EXPIRED DRUG ADMINISTERED [None]
